FAERS Safety Report 7261675-5 (Version None)
Quarter: 2011Q1

REPORT INFORMATION
  Report Type: 
  Country: None (occurrence: None)
  Receive Date: 20110130
  Receipt Date: 20101102
  Transmission Date: 20110831
  Serious: No
  Sender: FDA-Public Use
  Company Number: US-ABBOTT-10P-163-0683050-00

PATIENT
  Age: 62 Year
  Sex: Male

DRUGS (4)
  1. EYE DROPS [Concomitant]
     Indication: GLAUCOMA
  2. TIMOLOL MALEATE [Concomitant]
     Indication: PRODUCT USED FOR UNKNOWN INDICATION
     Dosage: 1 DROP IN EACH EYE IN AM; 1 DROP IN LEFT EYE IN THE EVENING.
  3. PREVACID [Concomitant]
     Indication: GASTROOESOPHAGEAL REFLUX DISEASE
  4. HUMIRA [Suspect]
     Indication: CROHN'S DISEASE
     Dates: start: 20100828

REACTIONS (3)
  - RHINORRHOEA [None]
  - NASAL CONGESTION [None]
  - NASOPHARYNGITIS [None]
